FAERS Safety Report 8866084 (Version 1)
Quarter: 2012Q4

REPORT INFORMATION
  Report Type: 
  Country: KR (occurrence: KR)
  Receive Date: 20121025
  Receipt Date: 20121025
  Transmission Date: 20130627
  Serious: Yes (Other)
  Sender: FDA-Public Use
  Company Number: KR-MYLANLABS-2012S1021426

PATIENT
  Age: 49 Year
  Sex: Male

DRUGS (7)
  1. FLUOROURACIL [Suspect]
     Indication: GASTRIC CANCER
     Dosage: 410mg daily
     Route: 042
  2. ASPIRIN [Concomitant]
  3. FERROUS SULFATE [Concomitant]
  4. FUROSEMIDE [Concomitant]
  5. MULTIVITAMIN [Concomitant]
  6. CALCIUM CARBONATE [Concomitant]
  7. ERYTHROPOIETIN [Concomitant]

REACTIONS (3)
  - Encephalopathy [Recovered/Resolved]
  - Nausea [Unknown]
  - Vomiting [Unknown]
